FAERS Safety Report 20798949 (Version 1)
Quarter: 2022Q2

REPORT INFORMATION
  Report Type: Spontaneous
  Country: US (occurrence: US)
  Receive Date: 20220507
  Receipt Date: 20220507
  Transmission Date: 20220720
  Serious: No
  Sender: FDA-Public Use
  Company Number: US-CELGENE-USA-20220204007

PATIENT
  Sex: Female
  Weight: 40.37 kg

DRUGS (2)
  1. REVLIMID [Suspect]
     Active Substance: LENALIDOMIDE
     Indication: Follicular lymphoma
     Dosage: 25 MILLIGRAM
     Route: 048
     Dates: start: 20211220
  2. REVLIMID [Suspect]
     Active Substance: LENALIDOMIDE
     Indication: B-cell lymphoma
     Dosage: FREQUENCY: FOR 21 DAYS , THEN 7 DAYS OFF
     Route: 048
     Dates: start: 2022

REACTIONS (8)
  - Skin irritation [Unknown]
  - Rash [Unknown]
  - Acne [Unknown]
  - Pruritus [Unknown]
  - Dry skin [Unknown]
  - Skin disorder [Unknown]
  - Burning sensation [Unknown]
  - Intentional product use issue [Unknown]
